FAERS Safety Report 16435866 (Version 1)
Quarter: 2019Q2

REPORT INFORMATION
  Report Type: Report from Study
  Country: US (occurrence: US)
  Receive Date: 20190614
  Receipt Date: 20190614
  Transmission Date: 20190711
  Serious: Yes (Hospitalization)
  Sender: FDA-Public Use
  Company Number: US-GILEAD-2019-0413409

PATIENT
  Age: 23 Year
  Sex: Female

DRUGS (1)
  1. AZTREONAM LYSINE [Suspect]
     Active Substance: AZTREONAM LYSINE
     Indication: PSEUDOMONAS INFECTION
     Dosage: 75 MG, TID ON 28 DAY OFF 28
     Route: 055
     Dates: start: 2015

REACTIONS (3)
  - Depression [Not Recovered/Not Resolved]
  - Off label use [Not Recovered/Not Resolved]
  - Pulmonary function test decreased [Unknown]
